FAERS Safety Report 23959986 (Version 1)
Quarter: 2024Q2

REPORT INFORMATION
  Report Type: Spontaneous
  Country: AU (occurrence: AU)
  Receive Date: 20240611
  Receipt Date: 20240611
  Transmission Date: 20240717
  Serious: Yes (Congenital Anomaly, Other)
  Sender: FDA-Public Use
  Company Number: AU-STRIDES ARCOLAB LIMITED-2024SP006398

PATIENT

DRUGS (2)
  1. LEVETIRACETAM [Suspect]
     Active Substance: LEVETIRACETAM
     Indication: Product used for unknown indication
     Dosage: UNK (THE PATIENT^S MOTHER RECEIVED LEVETIRACETAM 2000MG FOR EPILEPSY DURING PREGNANCY)
     Route: 064
  2. LACOSAMIDE [Suspect]
     Active Substance: LACOSAMIDE
     Indication: Product used for unknown indication
     Dosage: UNK (THE PATIENT^S MOTHER RECEIVED LACOSAMIDE FOR EPILEPSY DURING PREGNANCY)
     Route: 064

REACTIONS (2)
  - Cytogenetic abnormality [Unknown]
  - Foetal exposure during pregnancy [Unknown]
